FAERS Safety Report 8864970 (Version 1)
Quarter: 2012Q4

REPORT INFORMATION
  Report Type: 
  Country: US (occurrence: US)
  Receive Date: 20121024
  Receipt Date: 20121024
  Transmission Date: 20130627
  Serious: No
  Sender: FDA-Public Use
  Company Number: US-AMGEN-USASP2012000137

PATIENT
  Age: 56 Year
  Sex: Female
  Weight: 72.56 kg

DRUGS (8)
  1. ENBREL [Suspect]
     Indication: PSORIASIS
     Dosage: 50 mg, qwk
  2. ASPIRIN [Concomitant]
     Dosage: 81 mg, UNK
  3. INDERAL GRADUALE [Concomitant]
     Dosage: 10 mg, UNK
  4. ZOLOFT [Concomitant]
     Dosage: 25 mg, UNK
  5. LOVAZA [Concomitant]
  6. ZETIA [Concomitant]
     Dosage: 10 mg, UNK
  7. CALCIUM [Concomitant]
  8. MULTIVITAMIN                       /00097801/ [Concomitant]

REACTIONS (4)
  - Feeling abnormal [Recovered/Resolved]
  - Mental status changes [Recovered/Resolved]
  - Pruritus [Recovered/Resolved]
  - Hypersensitivity [Recovered/Resolved]
